FAERS Safety Report 7686834-9 (Version None)
Quarter: 2011Q3

REPORT INFORMATION
  Report Type: 
  Country: None (occurrence: None)
  Receive Date: 20110816
  Receipt Date: 20110203
  Transmission Date: 20111222
  Serious: No
  Sender: FDA-Public Use
  Company Number: US-BAYER-2011-009555

PATIENT
  Age: 31 Year
  Sex: Female

DRUGS (2)
  1. MIRENA [Suspect]
     Indication: CONTRACEPTION
     Dosage: 20 MCG/24HR, CONT
     Route: 015
     Dates: start: 20101117, end: 20101201
  2. MIRENA [Suspect]
     Dosage: 20 MCG/24HR, CONT
     Route: 015

REACTIONS (8)
  - DYSMENORRHOEA [None]
  - MOOD SWINGS [None]
  - MENORRHAGIA [None]
  - HEADACHE [None]
  - BACK PAIN [None]
  - LIBIDO DECREASED [None]
  - DYSPAREUNIA [None]
  - MENSTRUAL DISORDER [None]
